FAERS Safety Report 11567048 (Version 1)
Quarter: 2015Q3

REPORT INFORMATION
  Report Type: Spontaneous
  Country: US (occurrence: US)
  Receive Date: 20150916
  Receipt Date: 20150916
  Transmission Date: 20151125
  Serious: No
  Sender: FDA-Public Use
  Company Number: US-ELI_LILLY_AND_COMPANY-US200907001255

PATIENT
  Age: 73 Year
  Sex: Female

DRUGS (8)
  1. ECOTRIN [Concomitant]
     Active Substance: ASPIRIN
  2. FORTEO [Suspect]
     Active Substance: TERIPARATIDE
     Dosage: UNK, UNKNOWN
     Dates: start: 20090808, end: 200908
  3. CREON [Concomitant]
     Active Substance: PANCRELIPASE AMYLASE\PANCRELIPASE LIPASE\PANCRELIPASE PROTEASE
  4. IRON [Concomitant]
     Active Substance: IRON
  5. PREDNISONE. [Concomitant]
     Active Substance: PREDNISONE
  6. FORTEO [Suspect]
     Active Substance: TERIPARATIDE
     Indication: OSTEOPOROSIS
     Dosage: UNK, UNKNOWN
     Dates: start: 20090629, end: 20090802
  7. MULTIVITAMINS [Concomitant]
     Active Substance: VITAMINS
  8. BACTRIM [Concomitant]
     Active Substance: SULFAMETHOXAZOLE\TRIMETHOPRIM

REACTIONS (12)
  - Dizziness [Not Recovered/Not Resolved]
  - Muscle spasms [Recovering/Resolving]
  - Back pain [Recovering/Resolving]
  - Eye disorder [Unknown]
  - Pain [Recovering/Resolving]
  - Limb discomfort [Unknown]
  - Osteoarthritis [Unknown]
  - Bed rest [Unknown]
  - Visual acuity reduced [Unknown]
  - Rheumatoid arthritis [Unknown]
  - Body temperature increased [Unknown]
  - Abasia [Unknown]

NARRATIVE: CASE EVENT DATE: 20090629
